FAERS Safety Report 20235422 (Version 1)
Quarter: 2021Q4

REPORT INFORMATION
  Report Type: Report from Study
  Country: IR (occurrence: IR)
  Receive Date: 20211228
  Receipt Date: 20211228
  Transmission Date: 20220303
  Serious: Yes (Other)
  Sender: FDA-Public Use
  Company Number: IR-SUN PHARMACEUTICAL INDUSTRIES LTD-2021RR-321643

PATIENT
  Age: 4 Year
  Sex: Male

DRUGS (14)
  1. AZITHROMYCIN [Suspect]
     Active Substance: AZITHROMYCIN
     Indication: COVID-19
     Dosage: UNK
     Route: 065
  2. MEROPENEM [Suspect]
     Active Substance: MEROPENEM
     Indication: COVID-19
     Dosage: UNK
     Route: 065
  3. MYCOPHENOLIC ACID [Suspect]
     Active Substance: MYCOPHENOLIC ACID
     Indication: Immunosuppression
     Dosage: UNK
     Route: 065
  4. PREDNISOLONE [Suspect]
     Active Substance: PREDNISOLONE
     Indication: Immunosuppression
     Dosage: UNK
     Route: 065
  5. CASPOFUNGIN [Suspect]
     Active Substance: CASPOFUNGIN
     Indication: COVID-19
     Dosage: UNK
     Route: 065
  6. OSELTAMIVIR [Suspect]
     Active Substance: OSELTAMIVIR
     Indication: COVID-19
     Dosage: UNK
     Route: 065
  7. HYDROXYCHLOROQUINE [Suspect]
     Active Substance: HYDROXYCHLOROQUINE
     Indication: COVID-19
     Dosage: UNK
     Route: 065
  8. AMPHOTERICIN B [Suspect]
     Active Substance: AMPHOTERICIN B
     Indication: COVID-19
     Dosage: UNK
     Route: 065
  9. VORICONAZOLE [Suspect]
     Active Substance: VORICONAZOLE
     Indication: COVID-19
     Dosage: UNK
     Route: 065
  10. VANCOMYCIN HYDROCHLORIDE [Suspect]
     Active Substance: VANCOMYCIN HYDROCHLORIDE
     Indication: COVID-19
     Dosage: UNK
     Route: 065
  11. COTRIMOXAZOLE [Suspect]
     Active Substance: SULFAMETHOXAZOLE\TRIMETHOPRIM
     Indication: COVID-19
     Dosage: UNK
     Route: 065
  12. PIPERACILLIN SODIUM\TAZOBACTAM SODIUM [Suspect]
     Active Substance: PIPERACILLIN SODIUM\TAZOBACTAM SODIUM
     Indication: COVID-19
     Dosage: UNK
     Route: 065
  13. AMIKACIN [Suspect]
     Active Substance: AMIKACIN
     Indication: COVID-19
     Dosage: UNK
     Route: 065
  14. CYCLOSPORINE [Suspect]
     Active Substance: CYCLOSPORINE
     Indication: Immunosuppression
     Dosage: UNK
     Route: 065

REACTIONS (5)
  - Cytomegalovirus infection reactivation [Unknown]
  - Pseudomonas infection [Unknown]
  - Coinfection [Unknown]
  - Off label use [Unknown]
  - COVID-19 [Unknown]
